FAERS Safety Report 7866697 (Version 3)
Quarter: 2013Q4

REPORT INFORMATION
  Report Type: Spontaneous
  Country: JP (occurrence: JP)
  Receive Date: 20110322
  Receipt Date: 20131106
  Transmission Date: 20140711
  Serious: Yes (Life-Threatening, Other)
  Sender: FDA-Public Use
  Company Number: JP-BAYER-2011-005243

PATIENT
  Age: 59 Year
  Sex: Male

DRUGS (3)
  1. NEXAVAR [Suspect]
     Indication: HEPATOCELLULAR CARCINOMA
     Dosage: 400 MG, QD
     Route: 048
     Dates: start: 20110111
  2. NEXAVAR [Suspect]
     Indication: HEPATOCELLULAR CARCINOMA
     Dosage: 200 MG, QD
     Route: 048
  3. WARFARIN POTASSIUM [Concomitant]
     Indication: CARDIAC DISORDER
     Dosage: UNK
     Route: 048

REACTIONS (4)
  - Cerebral infarction [Unknown]
  - Portal vein thrombosis [Unknown]
  - Diarrhoea [Recovering/Resolving]
  - Aspartate aminotransferase increased [Unknown]
